FAERS Safety Report 25208538 (Version 2)
Quarter: 2025Q3

REPORT INFORMATION
  Report Type: Spontaneous
  Country: US (occurrence: US)
  Receive Date: 20250417
  Receipt Date: 20250714
  Transmission Date: 20251021
  Serious: Yes (Other)
  Sender: BRISTOL-MYERS SQUIBB COMPANY
  Company Number: US-BRISTOL-MYERS SQUIBB COMPANY-2025-049864

PATIENT
  Age: 31 Year
  Sex: Female

DRUGS (4)
  1. NELVUTAMIG [Suspect]
     Active Substance: NELVUTAMIG
     Indication: Nodular melanoma
  2. NELVUTAMIG [Suspect]
     Active Substance: NELVUTAMIG
  3. NELVUTAMIG [Suspect]
     Active Substance: NELVUTAMIG
  4. TEMODAR [Concomitant]
     Active Substance: TEMOZOLOMIDE
     Indication: Nodular melanoma
     Dosage: D1-4

REACTIONS (1)
  - Immune-mediated hepatitis [Unknown]
